FAERS Safety Report 10414548 (Version 1)
Quarter: 2014Q3

REPORT INFORMATION
  Report Type: Report from Study
  Country: US (occurrence: US)
  Receive Date: 20140828
  Receipt Date: 20140828
  Transmission Date: 20150326
  Serious: Yes (Hospitalization)
  Sender: FDA-Public Use
  Company Number: US-BIOGENIDEC-2014BI082843

PATIENT
  Sex: Female

DRUGS (16)
  1. TYLENOL WITH CODEINE [Concomitant]
     Active Substance: ACETAMINOPHEN\CODEINE PHOSPHATE
  2. CRESTOR [Concomitant]
     Active Substance: ROSUVASTATIN CALCIUM
  3. TECFIDERA [Suspect]
     Active Substance: DIMETHYL FUMARATE
     Indication: MULTIPLE SCLEROSIS
     Route: 048
     Dates: start: 201406
  4. PHENOBARBITAL. [Concomitant]
     Active Substance: PHENOBARBITAL
  5. FERROUS SULFATE [Concomitant]
     Active Substance: FERROUS SULFATE\FERROUS SULFATE, DRIED
  6. VENLAFAXINE HCL [Concomitant]
     Active Substance: VENLAFAXINE HYDROCHLORIDE
  7. FOLIC ACID. [Concomitant]
     Active Substance: FOLIC ACID
  8. BACOLFEN [Concomitant]
     Active Substance: BACLOFEN
  9. LISINOPRIL. [Concomitant]
     Active Substance: LISINOPRIL
  10. AMLODIPINE BESYLATE. [Concomitant]
     Active Substance: AMLODIPINE BESYLATE
  11. CELEBREX [Concomitant]
     Active Substance: CELECOXIB
  12. NEURONTIN [Concomitant]
     Active Substance: GABAPENTIN
  13. DEPAKENE [Concomitant]
     Active Substance: VALPROIC ACID
  14. TRAMADOL HCL [Concomitant]
     Active Substance: TRAMADOL HYDROCHLORIDE
  15. SEROQUEL XR [Concomitant]
     Active Substance: QUETIAPINE FUMARATE
  16. OMERPRAZOLE [Concomitant]

REACTIONS (3)
  - Asthenia [Unknown]
  - Fatigue [Unknown]
  - Disorientation [Unknown]
